FAERS Safety Report 17997341 (Version 1)
Quarter: 2020Q3

REPORT INFORMATION
  Report Type: Spontaneous
  Country: US (occurrence: US)
  Receive Date: 20200708
  Receipt Date: 20200708
  Transmission Date: 20201103
  Serious: Yes (Other)
  Sender: FDA-Public Use
  Company Number: US-GILEAD-2020-0480039

PATIENT
  Age: 66 Year
  Sex: Male
  Weight: 117.9 kg

DRUGS (4)
  1. DEXAMETHASONE. [Concomitant]
     Active Substance: DEXAMETHASONE
     Dosage: UNK
     Dates: start: 20200627
  2. AZITHROMYCIN ANHYDROUS. [Concomitant]
     Active Substance: AZITHROMYCIN ANHYDROUS
     Dosage: UNK
     Dates: start: 20200627, end: 20200703
  3. REMDESIVIR. [Suspect]
     Active Substance: REMDESIVIR
     Indication: COVID-19
     Dosage: UNK UNK, QD
     Route: 042
     Dates: start: 20200630, end: 20200704
  4. CEFTRIAXONE. [Concomitant]
     Active Substance: CEFTRIAXONE
     Dosage: UNK
     Dates: start: 20200627, end: 20200703

REACTIONS (8)
  - Liver injury [Unknown]
  - Coagulopathy [Unknown]
  - Transaminases increased [Recovering/Resolving]
  - Inflammation [Unknown]
  - Prothrombin time prolonged [Unknown]
  - Serum ferritin increased [Unknown]
  - Blood bilirubin increased [Unknown]
  - Fibrin D dimer increased [Unknown]

NARRATIVE: CASE EVENT DATE: 20200701
